FAERS Safety Report 7375151-2 (Version None)
Quarter: 2011Q1

REPORT INFORMATION
  Report Type: 
  Country: None (occurrence: None)
  Receive Date: 20110315
  Receipt Date: 20110302
  Transmission Date: 20110831
  Serious: Yes (Other)
  Sender: FDA-Public Use
  Company Number: 028535

PATIENT
  Sex: Female
  Weight: 48.1 kg

DRUGS (4)
  1. FERROUS FUMARATE [Concomitant]
  2. PREDNISOLONE [Concomitant]
  3. CIMZIA [Suspect]
     Indication: CROHN'S DISEASE
     Dosage: 400 MG 1X/MONTH SUBCUTANEOUS
     Route: 058
     Dates: start: 20090101, end: 20110109
  4. PROTONIX [Concomitant]

REACTIONS (3)
  - TUBERCULOSIS [None]
  - PLEURAL EFFUSION [None]
  - HAEMOGLOBIN DECREASED [None]
